FAERS Safety Report 7720060-X (Version None)
Quarter: 2011Q3

REPORT INFORMATION
  Report Type: 
  Country: None (occurrence: None)
  Receive Date: 20110824
  Receipt Date: 20110810
  Transmission Date: 20111222
  Serious: Yes (Hospitalization)
  Sender: FDA-Public Use
  Company Number: DSJ-2011-17061

PATIENT
  Age: 64 Year
  Sex: Male

DRUGS (5)
  1. GLIMEPIRIDE (GLIMEPIRIDE) (GLIMEPIRIDE) [Concomitant]
  2. CLOPIDOGREL (CLOPIDOGREL) (CLOPIDOGREL) [Concomitant]
  3. BENICAR ANLO(OLMESARTAN MEDOXOMIL, AMLOCIPINE BESILATE) (TABLET) (OLME [Suspect]
     Indication: HYPERTENSION
     Dosage: 40/5 MG (1 IN 1 D), PER ORAL; 20/5 MG (1 IN 1 D), PER ORAL
     Route: 048
     Dates: start: 20090101, end: 20110101
  4. BENICAR ANLO(OLMESARTAN MEDOXOMIL, AMLOCIPINE BESILATE) (TABLET) (OLME [Suspect]
     Indication: HYPERTENSION
     Dosage: 40/5 MG (1 IN 1 D), PER ORAL; 20/5 MG (1 IN 1 D), PER ORAL
     Route: 048
     Dates: start: 20110101
  5. METFORMIN HCL [Concomitant]

REACTIONS (3)
  - ANGIOPLASTY [None]
  - HYPOTENSION [None]
  - CATHETER PLACEMENT [None]
